FAERS Safety Report 10006253 (Version 1)
Quarter: 2014Q1

REPORT INFORMATION
  Report Type: Spontaneous
  Country: US (occurrence: US)
  Receive Date: 20140313
  Receipt Date: 20140313
  Transmission Date: 20141002
  Serious: Yes (Other)
  Sender: FDA-Public Use
  Company Number: US-RB-063710-14

PATIENT
  Age: 78 Year
  Sex: Female

DRUGS (2)
  1. MUCINEX DM [Suspect]
     Indication: PRODUCT USED FOR UNKNOWN INDICATION
     Dosage: 1 TABLET PER 12 HOURS; TOOK 2 TABLETS INSTEAD OF 1 ON ONE OF THE INTERVALS
     Route: 048
     Dates: start: 20140304
  2. MUCINEX DM [Suspect]
     Route: 048
     Dates: start: 20140305

REACTIONS (2)
  - Muscle spasms [Not Recovered/Not Resolved]
  - Muscle spasms [Recovered/Resolved]
